FAERS Safety Report 8487107-7 (Version None)
Quarter: 2012Q3

REPORT INFORMATION
  Report Type: 
  Country: None (occurrence: None)
  Receive Date: 20120704
  Receipt Date: 20120702
  Transmission Date: 20120928
  Serious: Yes (Hospitalization, Other)
  Sender: FDA-Public Use
  Company Number: PHFR2012GB001478

PATIENT
  Sex: Female

DRUGS (30)
  1. SULPIRIDE [Concomitant]
     Dosage: 1 TAB 21:00 HRS AND TAB 2 13:00HRS
  2. SULPIRIDE [Concomitant]
     Dosage: 400 MG, 21 TAB AT 18:00HRS AND 2 TAB AT21:00HRS
  3. METFORMIN HCL [Concomitant]
     Dosage: 1 DF, BID(2TAB @08:00HRS)
  4. CALCIUM CARBONATE [Concomitant]
     Dosage: 1 DF, BID(1 @08;00HRS AN1AT 21:00HRS)
  5. BECLOMETHASONE DIPROPIONATE [Concomitant]
     Dosage: 2 DF, BID(2 PUFFS @08:00 HRS AND 21:00 HRS0
  6. LACTULOSE [Concomitant]
     Dosage: UNK
  7. CLOZARIL [Suspect]
     Route: 048
     Dates: start: 20000210
  8. MOVIPREP [Concomitant]
     Dosage: UPTO 4 SACHETS WHEN REQUIRED
  9. CETIRIZINE HCL [Concomitant]
     Dosage: 1 DF, QD(1 TAB@21:00HRS)
  10. TRIHEXYPHENIDYL HCL [Concomitant]
     Dosage: 1 DF, TID(1 @08:00, 13:00 AND21:00)
  11. SALOMOL [Concomitant]
     Dosage: 6 DF, PRN(UPTO 6 PUFFS WHEN REQUIRED)
  12. ATORVASTATIN [Concomitant]
     Dosage: 1 DF, 21:00HRS
  13. DESMOPRESSIN ACETATE [Concomitant]
     Dosage: 2 DF, (2 TAB 13:00HRS)
  14. VALPROATE SODIUM [Concomitant]
     Dosage: 4 DF, BID
  15. VITAMIN B-COMPLEX WITH MINERALS [Concomitant]
     Dosage: 1 DF, QD(1 @13:00 HRS)
  16. PREDNISOLONE [Concomitant]
     Dosage: 40 MG, PRN(ADJUSTED AS REQUIRED)
  17. AMOXICILLIN AND CLAVULANATE POTASSIUM [Concomitant]
  18. ESCITALOPRAM [Concomitant]
     Dosage: 1 DF, QD(1 TAB13:00HRS)
  19. PROCYCLIDINE HYDROCHLORIDE 2MG TAB [Concomitant]
     Dosage: 3 DF, PRN(1X3 TIMES A DAY)
  20. DIAZEPAM [Concomitant]
     Dosage: 1 DF, PRN
  21. CLOZARIL [Suspect]
     Dosage: 550 MG, (250 MG AT 1 PM AND 300 MG AT 10PM)
     Route: 048
  22. BISACODYL [Concomitant]
     Dosage: 4 DF, (2 TAB 13:00 AND 2 TAB 18:00HRS)
  23. MONTELUKAST [Concomitant]
     Dosage: 1 DF, QD(1TAB@21:00HRS)
  24. SIMBICORT TURBUHALER [Concomitant]
     Dosage: 2 DF, BID(2 PUFFS @0800 AND 2 PUFFS @2100)
  25. ZIMOVANE [Concomitant]
     Dosage: 2 DF, QD  21.00 H
  26. COD-LIVER OIL [Concomitant]
     Dosage: 1 DF, QD(13:00 HRS)
  27. OMEPRAZOLE [Concomitant]
     Dosage: 1 DF, QD(1 TAB@13:00HRS)
  28. SENNA-MINT WAF [Concomitant]
     Dosage: 2 DF, (1TAB @13:00 AND1 TAB @18:00HRS)
  29. ACETAMINOPHEN [Concomitant]
     Dosage: 2 DF, Q4H
  30. GAVISCON [Concomitant]
     Dosage: 15 ML, PRN( UPTO 4 DAILY)

REACTIONS (7)
  - ASTHMA [None]
  - WHITE BLOOD CELL COUNT INCREASED [None]
  - ANTIPSYCHOTIC DRUG LEVEL INCREASED [None]
  - RESPIRATORY TRACT INFECTION [None]
  - LOWER RESPIRATORY TRACT INFECTION [None]
  - RESPIRATORY DISORDER [None]
  - NEUTROPHIL COUNT INCREASED [None]
